FAERS Safety Report 7005215-4 (Version None)
Quarter: 2010Q3

REPORT INFORMATION
  Report Type: 
  Country: None (occurrence: None)
  Receive Date: 20100920
  Receipt Date: 20100920
  Transmission Date: 20110219
  Serious: Yes (Hospitalization)
  Sender: FDA-Public Use
  Company Number: None

PATIENT
  Age: 49 Year
  Sex: Female
  Weight: 91.63 kg

DRUGS (1)
  1. TOLNAFTATE [Suspect]
     Indication: FUNGAL INFECTION
     Dosage: UD TOP
     Route: 061
     Dates: start: 20100409, end: 20100409

REACTIONS (2)
  - ABASIA [None]
  - BLISTER [None]
